FAERS Safety Report 7828573 (Version 3)
Quarter: 2012Q4

REPORT INFORMATION
  Report Type: 
  Country: US (occurrence: US)
  Receive Date: 20110225
  Receipt Date: 20120910
  Transmission Date: 20130627
  Serious: Yes (Other)
  Sender: FDA-Public Use
  Company Number: US-ROCHE-734452

PATIENT
  Age: 14 Year
  Sex: Female
  Weight: 68 kg

DRUGS (7)
  1. ACCUTANE [Suspect]
     Indication: ACNE CYSTIC
     Route: 065
  2. ACCUTANE [Suspect]
     Route: 065
  3. ACCUTANE [Suspect]
     Route: 065
  4. ACCUTANE [Suspect]
     Route: 065
     Dates: start: 19960613, end: 19970101
  5. ACCUTANE [Suspect]
     Route: 065
  6. ACCUTANE [Suspect]
     Route: 065
  7. DEPO-PROVERA [Concomitant]

REACTIONS (6)
  - Colitis ulcerative [Unknown]
  - Gastrointestinal injury [Unknown]
  - Gastrointestinal disorder [Unknown]
  - Depression [Unknown]
  - Oral herpes [Unknown]
  - Chapped lips [Unknown]
